FAERS Safety Report 10094621 (Version 3)
Quarter: 2014Q2

REPORT INFORMATION
  Report Type: Spontaneous
  Country: US (occurrence: US)
  Receive Date: 20140422
  Receipt Date: 20140605
  Transmission Date: 20141212
  Serious: No
  Sender: FDA-Public Use
  Company Number: US-PFIZER INC-2014110025

PATIENT
  Age: 55 Year
  Sex: Female

DRUGS (2)
  1. PREMPRO [Suspect]
     Indication: HORMONE REPLACEMENT THERAPY
     Dosage: 0.3/1.25 MG, DAILY
     Route: 048
     Dates: start: 20080801
  2. PREMPRO [Suspect]
     Indication: MENOPAUSE
     Dosage: 0.625/2.5 MG, DAILY
     Route: 048
     Dates: start: 20121022

REACTIONS (2)
  - Drug ineffective [Unknown]
  - Product quality issue [Unknown]
